FAERS Safety Report 11174850 (Version 2)
Quarter: 2015Q3

REPORT INFORMATION
  Report Type: Other
  Country: GB (occurrence: GB)
  Receive Date: 20150609
  Receipt Date: 20150723
  Transmission Date: 20151125
  Serious: Yes (Death, Hospitalization, Other)
  Sender: FDA-Public Use
  Company Number: GB-TARO PHARMACEUTICALS U.S.A., INC-2015SUN01339

PATIENT

DRUGS (9)
  1. SPIRIVA [Concomitant]
     Active Substance: TIOTROPIUM BROMIDE MONOHYDRATE
  2. BUTRANS [Concomitant]
     Active Substance: BUPRENORPHINE
  3. BUMETANIDE. [Concomitant]
     Active Substance: BUMETANIDE
  4. LANSOPRAZOLE. [Concomitant]
     Active Substance: LANSOPRAZOLE
  5. COCODAMOL [Concomitant]
     Active Substance: ACETAMINOPHEN\CODEINE PHOSPHATE
  6. AMITRIPTYLINE [Concomitant]
     Active Substance: AMITRIPTYLINE
  7. WARFARIN [Suspect]
     Active Substance: WARFARIN
     Indication: ATRIAL FIBRILLATION
     Dosage: 1MG OR 2MG ON ALTERNATE DAYS.
     Route: 048
     Dates: end: 20141007
  8. SIMVASTATIN. [Concomitant]
     Active Substance: SIMVASTATIN
  9. BISOPROLOL [Concomitant]
     Active Substance: BISOPROLOL

REACTIONS (4)
  - Cerebral haemorrhage [Fatal]
  - Depressed level of consciousness [Not Recovered/Not Resolved]
  - Intracranial pressure increased [Not Recovered/Not Resolved]
  - International normalised ratio increased [Not Recovered/Not Resolved]

NARRATIVE: CASE EVENT DATE: 20141007
